FAERS Safety Report 16350209 (Version 1)
Quarter: 2019Q2

REPORT INFORMATION
  Report Type: Spontaneous
  Country: FR (occurrence: FR)
  Receive Date: 20190523
  Receipt Date: 20190523
  Transmission Date: 20190711
  Serious: Yes (Hospitalization)
  Sender: FDA-Public Use
  Company Number: FR-TEVA-2019-FR-1051744

PATIENT
  Age: 69 Year
  Sex: Female
  Weight: 58.8 kg

DRUGS (12)
  1. CIFLOX [CIPROFLOXACIN] [Suspect]
     Active Substance: CIPROFLOXACIN
     Indication: LUNG INFECTION
     Dosage: 2 DOSAGE FORMS DAILY;
     Route: 048
     Dates: start: 20181104, end: 20181105
  2. CORTANCYL [Concomitant]
     Active Substance: PREDNISONE
     Indication: INFECTION
     Route: 048
     Dates: start: 20181104, end: 20181107
  3. CALCIDOSE VITAMINE D, POUDRE ORALE EN SACHET-DOSE [Concomitant]
     Active Substance: CALCIUM\CHOLECALCIFEROL
     Route: 048
  4. IBRANCE [Concomitant]
     Active Substance: PALBOCICLIB
     Route: 030
     Dates: start: 20180530, end: 20181105
  5. XGEVA [Concomitant]
     Active Substance: DENOSUMAB
     Route: 030
  6. METFORMINE [Concomitant]
     Active Substance: METFORMIN HYDROCHLORIDE
     Route: 048
  7. AMOXICILLINE [Concomitant]
     Active Substance: AMOXICILLIN
     Dosage: 6 GRAM DAILY;
     Route: 048
  8. RAMIPRIL. [Suspect]
     Active Substance: RAMIPRIL
     Indication: HYPERTENSION
     Dosage: 5 MILLIGRAM DAILY;
     Route: 048
  9. DUROGESIC [Concomitant]
     Active Substance: FENTANYL
     Route: 062
  10. FASLODEX [Concomitant]
     Active Substance: FULVESTRANT
     Route: 030
     Dates: start: 20180530, end: 20181105
  11. ESIDREX [Suspect]
     Active Substance: HYDROCHLOROTHIAZIDE
     Indication: HYPERTENSION
     Dosage: NOT INFORMED
     Route: 048
  12. XYZALL 5 MG, COMPRIM? PELLICUL? [Concomitant]
     Active Substance: LEVOCETIRIZINE DIHYDROCHLORIDE
     Dosage: 1 DOSAGE FORMS DAILY;
     Route: 048

REACTIONS (1)
  - Prerenal failure [Recovered/Resolved]

NARRATIVE: CASE EVENT DATE: 20181106
